FAERS Safety Report 5162015-8 (Version None)
Quarter: 2006Q4

REPORT INFORMATION
  Report Type: 
  Country: None (occurrence: None)
  Receive Date: 20061130
  Receipt Date: 20061110
  Transmission Date: 20070319
  Serious: Yes (Death, Hospitalization)
  Sender: FDA-Public Use
  Company Number: ES-SANOFI-SYNTHELABO-D01200605271

PATIENT
  Sex: Male
  Weight: 78.7 kg

DRUGS (7)
  1. OXALIPLATIN [Suspect]
     Route: 042
     Dates: start: 20061108, end: 20061108
  2. METOCLOPRAMID [Concomitant]
     Dates: start: 20060621
  3. LORAZEPAM [Concomitant]
     Dates: start: 20060621
  4. METAMIZOLE MAGNESIUM [Concomitant]
     Dates: start: 20060601, end: 20060621
  5. LEUCOVORIN CALCIUM [Suspect]
     Route: 042
     Dates: start: 20061108, end: 20061108
  6. FLUOROURACIL [Suspect]
     Dosage: 400 MG/M? (792MG) IV BOLUS D1+D2 FOLLOWED BY 5-FU 2400 MG/M? (4752MG) OVER 46 HR CONTINUOUS INFUSION
     Route: 042
     Dates: start: 20061108, end: 20061109
  7. SR57746 OR PLACEBO [Suspect]
     Indication: NEUROLOGICAL SYMPTOM
     Route: 048
     Dates: start: 20060607, end: 20061109

REACTIONS (3)
  - HAEMOGLOBIN DECREASED [None]
  - SPLENIC HAEMATOMA [None]
  - THROMBOCYTOPENIC PURPURA [None]
